FAERS Safety Report 11798881 (Version 2)
Quarter: 2016Q1

REPORT INFORMATION
  Report Type: Spontaneous
  Country: CO (occurrence: CO)
  Receive Date: 20151203
  Receipt Date: 20160204
  Transmission Date: 20160525
  Serious: Yes (Death, Hospitalization, Other)
  Sender: FDA-Public Use
  Company Number: CO-ALEXION PHARMACEUTICALS INC.-A201504883

PATIENT
  Age: 1 Year
  Sex: Male
  Weight: 10 kg

DRUGS (16)
  1. SALT [Concomitant]
     Active Substance: SODIUM CHLORIDE
     Indication: FREQUENT BOWEL MOVEMENTS
  2. CEFTRIAXONE. [Concomitant]
     Active Substance: CEFTRIAXONE
     Indication: OLIGURIA
     Dosage: UNK
     Route: 065
     Dates: start: 20151113
  3. PHENYTOIN. [Concomitant]
     Active Substance: PHENYTOIN
     Indication: PRODUCT USED FOR UNKNOWN INDICATION
     Dosage: 25 MG, Q12H
     Route: 042
  4. CAPTOPRIL. [Concomitant]
     Active Substance: CAPTOPRIL
     Indication: HYPERTENSION
  5. PHYTOMENADIONE [Concomitant]
     Active Substance: PHYTONADIONE
     Indication: PRODUCT USED FOR UNKNOWN INDICATION
     Route: 065
  6. FUROSEMIDE. [Concomitant]
     Active Substance: FUROSEMIDE
     Indication: OLIGURIA
     Dosage: 20 MG, IN 24 CC 3CC/HR
     Route: 042
     Dates: start: 20151113
  7. AMLODIPINE [Concomitant]
     Active Substance: AMLODIPINE BESYLATE
     Indication: PRODUCT USED FOR UNKNOWN INDICATION
     Dosage: 5 MG, 2 TABLETS PER DAY
     Route: 065
  8. SOLIRIS [Suspect]
     Active Substance: ECULIZUMAB
     Indication: HAEMOLYTIC URAEMIC SYNDROME
     Dosage: 300 MG, QW
     Route: 042
     Dates: start: 20151120, end: 20151127
  9. AMPICILLIN AND SULBACTAM [Concomitant]
     Active Substance: AMPICILLIN SODIUM\SULBACTAM SODIUM
     Indication: PRODUCT USED FOR UNKNOWN INDICATION
     Dosage: 500 MG, Q6H
     Route: 042
  10. SODIUM BICARBONATE. [Concomitant]
     Active Substance: SODIUM BICARBONATE
     Indication: PRODUCT USED FOR UNKNOWN INDICATION
     Route: 065
  11. ACETAMINOPHEN. [Concomitant]
     Active Substance: ACETAMINOPHEN
     Indication: FREQUENT BOWEL MOVEMENTS
  12. FUROSEMIDE. [Concomitant]
     Active Substance: FUROSEMIDE
     Indication: HYPERTENSION
  13. SALT [Concomitant]
     Active Substance: SODIUM CHLORIDE
     Indication: DIARRHOEA
     Dosage: UNK
     Route: 048
     Dates: start: 20151111
  14. ACETAMINOPHEN. [Concomitant]
     Active Substance: ACETAMINOPHEN
     Indication: DIARRHOEA
     Dosage: UNK
     Route: 065
     Dates: start: 20151111
  15. CAPTOPRIL. [Concomitant]
     Active Substance: CAPTOPRIL
     Indication: OLIGURIA
     Dosage: UNK
     Route: 065
     Dates: start: 20151113
  16. CEFTRIAXONE. [Concomitant]
     Active Substance: CEFTRIAXONE
     Indication: HYPERTENSION

REACTIONS (4)
  - Endocarditis [Not Recovered/Not Resolved]
  - Coagulopathy [Not Recovered/Not Resolved]
  - Cardio-respiratory arrest [Fatal]
  - Platelet count decreased [Unknown]

NARRATIVE: CASE EVENT DATE: 20151115
